FAERS Safety Report 8972195 (Version 5)
Quarter: 2016Q2

REPORT INFORMATION
  Report Type: Spontaneous
  Country: US (occurrence: US)
  Receive Date: 20121218
  Receipt Date: 20160408
  Transmission Date: 20160815
  Serious: Yes (Disabling)
  Sender: FDA-Public Use
  Company Number: US-009507513-1212USA005057

PATIENT
  Sex: Male

DRUGS (1)
  1. PROPECIA [Suspect]
     Active Substance: FINASTERIDE
     Indication: ANDROGENETIC ALOPECIA
     Dosage: 1 MG, QD
     Route: 048
     Dates: start: 20000525, end: 2006

REACTIONS (9)
  - Libido decreased [Unknown]
  - Sunburn [Unknown]
  - Chest pain [Unknown]
  - Anxiety [Not Recovered/Not Resolved]
  - Laceration [Unknown]
  - Sleep disorder [Unknown]
  - Erectile dysfunction [Unknown]
  - Depression [Not Recovered/Not Resolved]
  - Cognitive disorder [Not Recovered/Not Resolved]

NARRATIVE: CASE EVENT DATE: 20010620
